FAERS Safety Report 4773595-6 (Version None)
Quarter: 2005Q3

REPORT INFORMATION
  Report Type: 
  Country: None (occurrence: None)
  Receive Date: 20050920
  Receipt Date: 20050912
  Transmission Date: 20060218
  Serious: Yes (Disabling)
  Sender: FDA-Public Use
  Company Number: 2005GB01779

PATIENT
  Age: 92 Year
  Sex: Male

DRUGS (5)
  1. SEROQUEL [Suspect]
     Indication: DEMENTIA
     Route: 048
     Dates: start: 20050824, end: 20050824
  2. RISPERIDONE [Concomitant]
     Indication: DEMENTIA
     Route: 048
     Dates: start: 20050419, end: 20050823
  3. ASPIRIN [Concomitant]
     Route: 048
  4. BISOPROLOL [Concomitant]
     Route: 048
  5. FINASTERIDE [Concomitant]
     Route: 065

REACTIONS (3)
  - DYSARTHRIA [None]
  - FALL [None]
  - SOMNOLENCE [None]
